FAERS Safety Report 12104046 (Version 1)
Quarter: 2016Q1

REPORT INFORMATION
  Report Type: Spontaneous
  Country: FR (occurrence: FR)
  Receive Date: 20160223
  Receipt Date: 20160223
  Transmission Date: 20160526
  Serious: Yes (Hospitalization)
  Sender: FDA-Public Use
  Company Number: FR-ROCHE-1714725

PATIENT
  Age: 85 Year
  Sex: Male

DRUGS (3)
  1. REVLIMID [Suspect]
     Active Substance: LENALIDOMIDE
     Indication: MYELODYSPLASTIC SYNDROME
     Route: 065
     Dates: start: 20160120, end: 20160129
  2. ROCEPHINE [Suspect]
     Active Substance: CEFTRIAXONE SODIUM
     Route: 040
     Dates: start: 20160111, end: 20160125
  3. ROCEPHINE [Suspect]
     Active Substance: CEFTRIAXONE SODIUM
     Indication: PRODUCT USED FOR UNKNOWN INDICATION
     Route: 040
     Dates: end: 20151229

REACTIONS (1)
  - Vascular purpura [Unknown]

NARRATIVE: CASE EVENT DATE: 20160124
